FAERS Safety Report 9274888 (Version 1)
Quarter: 2013Q2

REPORT INFORMATION
  Report Type: Spontaneous
  Country: US (occurrence: None)
  Receive Date: 20130501
  Receipt Date: 20130501
  Transmission Date: 20140414
  Serious: Yes (Hospitalization)
  Sender: FDA-Public Use
  Company Number: None

PATIENT
  Age: 64 Year
  Sex: Male
  Weight: 82.5 kg

DRUGS (2)
  1. PEGINTERFERON [Suspect]
     Indication: HEPATITIS C
     Route: 058
     Dates: start: 20120812, end: 20130315
  2. RIBAVIRIN [Suspect]
     Indication: HEPATITIS C
     Dosage: 3 TAB
     Route: 048
     Dates: start: 20120817, end: 20130315

REACTIONS (3)
  - Pneumonia [None]
  - Deep vein thrombosis [None]
  - Pulmonary embolism [None]
